FAERS Safety Report 4948044-5 (Version None)
Quarter: 2006Q1

REPORT INFORMATION
  Report Type: 
  Country: None (occurrence: None)
  Receive Date: 20060320
  Receipt Date: 20050408
  Transmission Date: 20060701
  Serious: Yes (Other)
  Sender: FDA-Public Use
  Company Number: US-MERCK-0504USA01623

PATIENT
  Age: 32 Year
  Sex: Male

DRUGS (1)
  1. VIOXX [Suspect]
     Route: 048
     Dates: end: 20040101

REACTIONS (2)
  - ISCHAEMIC STROKE [None]
  - MYOCARDIAL INFARCTION [None]
